FAERS Safety Report 8880629 (Version 1)
Quarter: 2012Q4

REPORT INFORMATION
  Report Type: Report from Study
  Country: CA (occurrence: CA)
  Receive Date: 20121101
  Receipt Date: 20121101
  Transmission Date: 20130627
  Serious: Yes (Other)
  Sender: FDA-Public Use
  Company Number: CA-JNJFOC-20121011878

PATIENT
  Age: 59 Year
  Sex: Female
  Weight: 133.7 kg

DRUGS (8)
  1. REMICADE [Suspect]
     Indication: CROHN^S DISEASE
     Route: 042
  2. REMICADE [Suspect]
     Indication: CROHN^S DISEASE
     Dosage: 8 infusions till the time of report
     Route: 042
     Dates: start: 20121019
  3. AZATHIOPRINE [Concomitant]
     Route: 065
  4. VENLAFAXINE [Concomitant]
     Route: 065
  5. ESTRACE [Concomitant]
     Route: 065
  6. AMLODIPINE [Concomitant]
     Route: 065
  7. SYNTHROID [Concomitant]
     Route: 065
  8. COVERSYL [Concomitant]
     Route: 065

REACTIONS (3)
  - Urinary incontinence [Not Recovered/Not Resolved]
  - Vaginal haemorrhage [Not Recovered/Not Resolved]
  - Neoplasm malignant [Not Recovered/Not Resolved]
